FAERS Safety Report 9251859 (Version 2)
Quarter: 2013Q2

REPORT INFORMATION
  Report Type: Spontaneous
  Country: US (occurrence: US)
  Receive Date: 20130424
  Receipt Date: 20130603
  Transmission Date: 20140414
  Serious: Yes (Death)
  Sender: FDA-Public Use
  Company Number: US-PFIZER INC-2013126677

PATIENT
  Age: 42 Year
  Sex: Male

DRUGS (1)
  1. SUTENT [Suspect]
     Indication: RENAL CELL CARCINOMA
     Dosage: 50 MG, CYCLIC, 4 WEEKS ON, 2 WEEKS OFF
     Dates: start: 20130211

REACTIONS (4)
  - Death [Fatal]
  - Disease progression [Unknown]
  - Renal cancer [Unknown]
  - Hepatomegaly [Unknown]
